FAERS Safety Report 9207067 (Version 1)
Quarter: 2013Q2

REPORT INFORMATION
  Report Type: Spontaneous
  Country: FR (occurrence: FR)
  Receive Date: 20130403
  Receipt Date: 20130403
  Transmission Date: 20140414
  Serious: Yes (Other)
  Sender: FDA-Public Use
  Company Number: PHHY2013FR030827

PATIENT
  Age: 13 Year
  Sex: Male

DRUGS (3)
  1. RITALINE [Suspect]
     Indication: ATTENTION DEFICIT/HYPERACTIVITY DISORDER
     Dosage: 30 MG, DAILY (1 CAPSULE IN THE MORNING)
     Route: 048
  2. RITALINE LP [Suspect]
     Dosage: 30 MG, BID
     Route: 048
     Dates: start: 20130219, end: 20130219
  3. RITALIN [Suspect]
     Dosage: 10 MG, DAILY (1 TABLET AT MIDDAY)

REACTIONS (5)
  - Muscular weakness [Recovered/Resolved]
  - Incorrect dose administered [Recovered/Resolved]
  - Wrong drug administered [Recovered/Resolved]
  - Headache [Recovered/Resolved]
  - Palpitations [Recovered/Resolved]
